FAERS Safety Report 14460782 (Version 4)
Quarter: 2018Q3

REPORT INFORMATION
  Report Type: Report from Study
  Country: FR (occurrence: FR)
  Receive Date: 20180130
  Receipt Date: 20180815
  Transmission Date: 20181010
  Serious: Yes (Other)
  Sender: FDA-Public Use
  Company Number: FR-PFIZER INC-2018027398

PATIENT
  Age: 64 Year
  Sex: Male
  Weight: 84 kg

DRUGS (4)
  1. CYTARABINE. [Suspect]
     Active Substance: CYTARABINE
     Indication: ACUTE MYELOID LEUKAEMIA
     Dosage: 400 MG/24H, D1
     Dates: start: 20171212, end: 20171212
  2. MYLOTARG [Suspect]
     Active Substance: GEMTUZUMAB OZOGAMICIN
     Dosage: 10 MG, D4
     Dates: start: 20171215
  3. CYTARABINE. [Suspect]
     Active Substance: CYTARABINE
     Dosage: 400 MG/24H, D7
     Dates: start: 20171218
  4. MYLOTARG [Suspect]
     Active Substance: GEMTUZUMAB OZOGAMICIN
     Indication: ACUTE MYELOID LEUKAEMIA
     Dosage: 10 MG, D1
     Dates: start: 20171212, end: 20171212

REACTIONS (3)
  - Venoocclusive disease [Unknown]
  - Platelet count decreased [Recovered/Resolved]
  - Hyperbilirubinaemia [Recovered/Resolved with Sequelae]

NARRATIVE: CASE EVENT DATE: 20171218
